FAERS Safety Report 11592897 (Version 1)
Quarter: 2015Q4

REPORT INFORMATION
  Report Type: Spontaneous
  Country: DE (occurrence: DE)
  Receive Date: 20151005
  Receipt Date: 20151005
  Transmission Date: 20160304
  Serious: Yes (Other)
  Sender: FDA-Public Use
  Company Number: DE-SA-2015SA148859

PATIENT
  Age: 84 Year
  Sex: Female

DRUGS (8)
  1. LEFLUNOMIDE WINTHROP [Suspect]
     Active Substance: LEFLUNOMIDE
     Indication: RHEUMATIC DISORDER
     Route: 065
     Dates: start: 20150916, end: 20150921
  2. XARELTO [Concomitant]
     Active Substance: RIVAROXABAN
  3. AMLODIPIN [Concomitant]
     Active Substance: AMLODIPINE BESYLATE
  4. MTX [Concomitant]
     Active Substance: METHOTREXATE SODIUM
     Indication: RHEUMATIC DISORDER
  5. ALENDRONSAURE [Concomitant]
  6. TORASEMID [Concomitant]
     Active Substance: TORSEMIDE
  7. PREDNISOLON [Concomitant]
     Active Substance: PREDNISOLONE
  8. RAMIPRIL. [Concomitant]
     Active Substance: RAMIPRIL

REACTIONS (8)
  - Paralysis [Recovering/Resolving]
  - Abasia [Recovering/Resolving]
  - Dermatitis allergic [Recovering/Resolving]
  - Neuropathy peripheral [Recovering/Resolving]
  - Asthenia [Recovering/Resolving]
  - Hypoaesthesia [Recovering/Resolving]
  - Peripheral swelling [Recovering/Resolving]
  - Paraesthesia [Recovering/Resolving]

NARRATIVE: CASE EVENT DATE: 201509
